FAERS Safety Report 7524427-4 (Version None)
Quarter: 2011Q2

REPORT INFORMATION
  Report Type: 
  Country: None (occurrence: None)
  Receive Date: 20110525
  Receipt Date: 20110510
  Transmission Date: 20111010
  Serious: Yes (Hospitalization)
  Sender: FDA-Public Use
  Company Number: EU-2011-10071

PATIENT
  Sex: Female
  Weight: 63 kg

DRUGS (11)
  1. PASPERTIN (METOCLOPRAMIDE HYDROCHLORIDE) [Concomitant]
  2. CALCIUM (CALCIUM) [Concomitant]
  3. AROXIA (ETORICOXIB) [Concomitant]
  4. ROCALTROL [Concomitant]
  5. DUROGESIC (FENTANYL) [Concomitant]
  6. PANTOPRAZOLE SODIUM [Concomitant]
  7. NAVOBAN (TROPISETRON HYDROCHLORIDE) [Concomitant]
  8. L-THYROXIN (LEVOTHYOXINE SODIUM) [Concomitant]
  9. SAMSCA [Suspect]
     Indication: NEOPLASM
     Dosage: 15 MG MILLIGRAM(S) 30 MG MILLIGRAM(S), DAILY DOSE, ORAL
     Route: 048
     Dates: start: 20110204, end: 20110211
  10. SAMSCA [Suspect]
     Indication: HYPONATRAEMIA
     Dosage: 15 MG MILLIGRAM(S) 30 MG MILLIGRAM(S), DAILY DOSE, ORAL
     Route: 048
     Dates: start: 20110204, end: 20110211
  11. SAMSCA [Suspect]
     Indication: INAPPROPRIATE ANTIDIURETIC HORMONE SECRETION
     Dosage: 15 MG MILLIGRAM(S) 30 MG MILLIGRAM(S), DAILY DOSE, ORAL
     Route: 048
     Dates: start: 20110204, end: 20110211

REACTIONS (1)
  - PANCREATITIS NECROTISING [None]
